FAERS Safety Report 11761656 (Version 3)
Quarter: 2016Q1

REPORT INFORMATION
  Report Type: Report from Study
  Country: DE (occurrence: DE)
  Receive Date: 20151120
  Receipt Date: 20160125
  Transmission Date: 20160525
  Serious: Yes (Life-Threatening, Other)
  Sender: FDA-Public Use
  Company Number: DE-TEVA-575795ISR

PATIENT
  Age: 8 Year
  Sex: Female
  Weight: 23 kg

DRUGS (5)
  1. PREDNISOLONE. [Concomitant]
     Active Substance: PREDNISOLONE
     Indication: THROMBOCYTOPENIA
     Dosage: DATE OF LAST ADMINISTRATION BEFORE ONSET OF SAE 27-JUN-2015
     Route: 042
     Dates: start: 20150617
  2. CYCLOSPORINE. [Concomitant]
     Active Substance: CYCLOSPORINE
     Indication: PROPHYLAXIS AGAINST GRAFT VERSUS HOST DISEASE
     Dosage: DATE OF LAST ADMINISTRATION BEFORE ONSET OF SAE 27-JUN-2015
     Route: 042
     Dates: start: 20150617
  3. FLUDARABINE [Suspect]
     Active Substance: FLUDARABINE PHOSPHATE
     Indication: BONE MARROW CONDITIONING REGIMEN
     Dosage: 26.7 MILLIGRAM DAILY;
     Route: 042
     Dates: start: 20150611, end: 20150615
  4. TREOSULFAN [Suspect]
     Active Substance: TREOSULFAN
     Indication: BONE MARROW CONDITIONING REGIMEN
     Dosage: 10.7 GRAM DAILY;
     Route: 042
     Dates: start: 20150612, end: 20150614
  5. THIOTEPA. [Suspect]
     Active Substance: THIOTEPA
     Indication: BONE MARROW CONDITIONING REGIMEN
     Dosage: 113.5 MILLIGRAM DAILY;
     Route: 042
     Dates: start: 20150616, end: 20150616

REACTIONS (5)
  - Encephalopathy [Recovered/Resolved with Sequelae]
  - Sepsis [Recovered/Resolved]
  - Capillary leak syndrome [Not Recovered/Not Resolved]
  - Immune thrombocytopenic purpura [Recovered/Resolved]
  - Pyrexia [Not Recovered/Not Resolved]

NARRATIVE: CASE EVENT DATE: 20150624
